FAERS Safety Report 5266854-4 (Version None)
Quarter: 2007Q1

REPORT INFORMATION
  Report Type: 
  Country: None (occurrence: None)
  Receive Date: 20070316
  Receipt Date: 20070312
  Transmission Date: 20070707
  Serious: Yes (Death, Other)
  Sender: FDA-Public Use
  Company Number: PHEH2006US12247

PATIENT
  Age: 66 Year
  Sex: Male

DRUGS (8)
  1. DOXYCYCLINE [Concomitant]
     Dosage: 50 MG, UNK
  2. ZOMETA [Suspect]
     Indication: MULTIPLE MYELOMA
     Dosage: 4 MG MONTHLY
     Dates: start: 20010502, end: 20060601
  3. AREDIA [Suspect]
     Indication: MULTIPLE MYELOMA
     Dosage: 90 MG MONTHLY
     Dates: start: 20000809, end: 20020411
  4. PREDNISONE [Concomitant]
     Dates: start: 20000826, end: 20010508
  5. IMMUNOGLOBULIN G HUMAN [Concomitant]
     Dates: start: 20020101, end: 20060101
  6. THALIDOMIDE [Concomitant]
     Dates: start: 20010101, end: 20060101
  7. COUMADIN [Concomitant]
  8. LIPITOR [Concomitant]

REACTIONS (12)
  - ABSCESS [None]
  - ACTINOMYCOSIS [None]
  - FISTULA [None]
  - GINGIVAL PAIN [None]
  - JOINT SWELLING [None]
  - MOUTH ULCERATION [None]
  - MULTIPLE MYELOMA [None]
  - OEDEMA PERIPHERAL [None]
  - PAIN IN JAW [None]
  - PROSTATE CANCER METASTATIC [None]
  - SWELLING [None]
  - WOUND DRAINAGE [None]
